FAERS Safety Report 4568841-8 (Version None)
Quarter: 2005Q1

REPORT INFORMATION
  Report Type: 
  Country: None (occurrence: None)
  Receive Date: 20050118
  Receipt Date: 20031117
  Transmission Date: 20050727
  Serious: Yes (Disabling, Other)
  Sender: FDA-Public Use
  Company Number: HQWYE200419NOV03

PATIENT
  Age: 48 Year
  Sex: Female

DRUGS (1)
  1. PREMPRO [Suspect]
     Indication: HORMONE REPLACEMENT THERAPY
     Dosage: 0.625MG DAILY AND INCREASED TO 2.5MG DAILY, ORAL
     Route: 048
     Dates: start: 19970401, end: 20011116

REACTIONS (2)
  - BREAST CANCER [None]
  - DEPRESSION [None]
